FAERS Safety Report 17356169 (Version 1)
Quarter: 2020Q1

REPORT INFORMATION
  Report Type: Spontaneous
  Country: US (occurrence: US)
  Receive Date: 20200131
  Receipt Date: 20200131
  Transmission Date: 20200409
  Serious: No
  Sender: FDA-Public Use
  Company Number: US-AMGEN-USASP2020013813

PATIENT
  Age: 77 Year
  Sex: Female

DRUGS (1)
  1. PROLIA [Suspect]
     Active Substance: DENOSUMAB
     Indication: OSTEOPOROSIS POSTMENOPAUSAL
     Dosage: 60 MILLIGRAM
     Route: 065
     Dates: start: 20191227

REACTIONS (6)
  - Dizziness [Unknown]
  - Pain [Unknown]
  - Insomnia [Unknown]
  - Disorientation [Unknown]
  - Abdominal pain upper [Unknown]
  - Hyperhidrosis [Unknown]
